FAERS Safety Report 11543648 (Version 3)
Quarter: 2015Q4

REPORT INFORMATION
  Report Type: Spontaneous
  Country: JP (occurrence: JP)
  Receive Date: 20150923
  Receipt Date: 20151119
  Transmission Date: 20160304
  Serious: Yes (Other)
  Sender: FDA-Public Use
  Company Number: JP-009507513-1509JPN010716

PATIENT
  Age: 64 Year
  Sex: Female

DRUGS (3)
  1. REMIFENTANIL HYDROCHLORIDE [Concomitant]
     Active Substance: REMIFENTANIL HYDROCHLORIDE
     Indication: INDUCTION AND MAINTENANCE OF ANAESTHESIA
     Dosage: DAILY DOSAGE UNKNOWN
     Route: 051
  2. ESLAX INTRAVENOUS 25MG/2.5ML [Suspect]
     Active Substance: ROCURONIUM BROMIDE
     Indication: NEUROMUSCULAR BLOCKING THERAPY
     Dosage: DAILY DOSAGE UNKNOWN
     Route: 042
  3. PROPOFOL. [Concomitant]
     Active Substance: PROPOFOL
     Indication: INDUCTION AND MAINTENANCE OF ANAESTHESIA
     Dosage: DAILY DOSAGE UNKNOWN
     Route: 051

REACTIONS (3)
  - Cardiac arrest [Recovering/Resolving]
  - Sinus node dysfunction [Unknown]
  - Bradycardia [Unknown]
